FAERS Safety Report 8243614-3 (Version None)
Quarter: 2012Q1

REPORT INFORMATION
  Report Type: 
  Country: None (occurrence: None)
  Receive Date: 20120315
  Receipt Date: 20100407
  Transmission Date: 20120608
  Serious: Yes (Other)
  Sender: FDA-Public Use
  Company Number: PHHY2010US21930

PATIENT

DRUGS (1)
  1. FANAPT [Suspect]

REACTIONS (3)
  - SEDATION [None]
  - CONFUSIONAL STATE [None]
  - HEADACHE [None]
